FAERS Safety Report 11401300 (Version 1)
Quarter: 2015Q3

REPORT INFORMATION
  Report Type: Spontaneous
  Country: GB (occurrence: GB)
  Receive Date: 20150820
  Receipt Date: 20150820
  Transmission Date: 20151125
  Serious: Yes (Other)
  Sender: FDA-Public Use
  Company Number: GB-009507513-1505GBR015380

PATIENT
  Age: 21 Year
  Sex: Female
  Weight: 55 kg

DRUGS (1)
  1. NEXPLANON [Suspect]
     Active Substance: ETONOGESTREL
     Indication: CONTRACEPTION
     Dosage: UNK
     Route: 058
     Dates: start: 20140213, end: 20150515

REACTIONS (11)
  - Implant site cyst [Recovering/Resolving]
  - Implant site pruritus [Recovering/Resolving]
  - Implant site erythema [Recovered/Resolved]
  - Implant site discharge [Recovering/Resolving]
  - Implant site swelling [Recovered/Resolved]
  - Implant site inflammation [Recovered/Resolved]
  - Implant site hypersensitivity [Unknown]
  - Implant site discharge [Recovered/Resolved]
  - Device dislocation [Recovered/Resolved]
  - Implant site cellulitis [Recovered/Resolved]
  - Implant site pain [Recovering/Resolving]

NARRATIVE: CASE EVENT DATE: 201412
